FAERS Safety Report 12697351 (Version 1)
Quarter: 2016Q3

REPORT INFORMATION
  Report Type: Spontaneous
  Country: None (occurrence: None)
  Receive Date: 20160829
  Receipt Date: 20160829
  Transmission Date: 20161109
  Serious: No
  Sender: FDA-Public Use
  Company Number: None

PATIENT
  Age: 55 Year
  Sex: Female
  Weight: 77.11 kg

DRUGS (1)
  1. LATANOPROST 0.005% BAUSCH+LOMB [Suspect]
     Active Substance: LATANOPROST
     Indication: GLAUCOMA
     Dosage: 1 DROP AT BEDTIME  INTO THE EYE
     Route: 047
     Dates: start: 20160708, end: 20160719

REACTIONS (5)
  - Eye pain [None]
  - Chronic obstructive pulmonary disease [None]
  - Dyspnoea [None]
  - Dyspepsia [None]
  - Abdominal discomfort [None]

NARRATIVE: CASE EVENT DATE: 20160719
